FAERS Safety Report 7914866-1 (Version None)
Quarter: 2011Q4

REPORT INFORMATION
  Report Type: 
  Country: None (occurrence: None)
  Receive Date: 20111115
  Receipt Date: 20111107
  Transmission Date: 20120403
  Serious: Yes (Other)
  Sender: FDA-Public Use
  Company Number: MX-ROCHE-1012452

PATIENT
  Age: 11 Year
  Sex: Male

DRUGS (2)
  1. XOLAIR [Suspect]
     Indication: ASTHMA
     Dosage: 2 APPLICATION
     Dates: start: 20101201
  2. XOLAIR [Suspect]
     Dosage: 1 APPLICATION

REACTIONS (2)
  - ASTHMA [None]
  - BLOOD IMMUNOGLOBULIN E INCREASED [None]
